FAERS Safety Report 12919333 (Version 1)
Quarter: 2016Q4

REPORT INFORMATION
  Report Type: Other
  Country: FR (occurrence: FR)
  Receive Date: 20161108
  Receipt Date: 20161108
  Transmission Date: 20170207
  Serious: Yes (Death)
  Sender: FDA-Public Use
  Company Number: FR-ACTELION-A-CH2016-144719

PATIENT
  Age: 74 Year
  Sex: Female

DRUGS (4)
  1. BOSENTAN. [Suspect]
     Active Substance: BOSENTAN
     Indication: PULMONARY ARTERIAL HYPERTENSION
     Dosage: UNK
     Route: 048
     Dates: start: 200905
  2. PACLITAXEL. [Concomitant]
     Active Substance: PACLITAXEL
     Indication: CERVIX CANCER METASTATIC
  3. BEVACIZUMAB [Concomitant]
     Active Substance: BEVACIZUMAB
     Indication: CERVIX CANCER METASTATIC
     Dosage: 15 MG/KG, EVERY 21 DAYS
     Dates: start: 2014
  4. CARBOPLATINE [Concomitant]
     Active Substance: CARBOPLATIN
     Indication: CERVIX CANCER METASTATIC

REACTIONS (7)
  - Disease progression [Fatal]
  - Squamous cell carcinoma of the cervix [Fatal]
  - Metastases to lymph nodes [Fatal]
  - Vaginal ulceration [Fatal]
  - Metrorrhagia [Fatal]
  - Dental operation [Unknown]
  - Tooth abscess [Unknown]

NARRATIVE: CASE EVENT DATE: 2011
